FAERS Safety Report 5664751-3 (Version None)
Quarter: 2008Q1

REPORT INFORMATION
  Report Type: 
  Country: None (occurrence: None)
  Receive Date: 20080314
  Receipt Date: 20080307
  Transmission Date: 20080703
  Serious: Yes (Hospitalization)
  Sender: FDA-Public Use
  Company Number: US-BAXTER-2008BH002201

PATIENT
  Sex: Male

DRUGS (3)
  1. DEXAMETHASONE TAB [Suspect]
     Indication: PREMEDICATION
     Route: 065
  2. TAXOTERE [Suspect]
     Indication: PROSTATE CANCER
     Dosage: DOSE UNIT:UNKNOWN
     Route: 042
  3. PREDNISONE TAB [Suspect]
     Indication: DRUG USE FOR UNKNOWN INDICATION
     Route: 048

REACTIONS (1)
  - BRONCHOSPASM [None]
